FAERS Safety Report 12920846 (Version 2)
Quarter: 2016Q4

REPORT INFORMATION
  Report Type: Spontaneous
  Country: US (occurrence: US)
  Receive Date: 20161107
  Receipt Date: 20161114
  Transmission Date: 20170207
  Serious: Yes (Hospitalization)
  Sender: FDA-Public Use
  Company Number: US-CELGENEUS-USA-2016108134

PATIENT
  Age: 85 Year
  Sex: Male
  Weight: 77 kg

DRUGS (21)
  1. ENOXAPARIN [Concomitant]
     Active Substance: ENOXAPARIN
     Indication: PULMONARY EMBOLISM
     Dosage: .1 PERCENT
     Route: 058
     Dates: start: 20160714
  2. PANTOPRAZOLE [Concomitant]
     Active Substance: PANTOPRAZOLE SODIUM
     Indication: GASTROOESOPHAGEAL REFLUX DISEASE
     Dosage: 4500 MILLIGRAM
     Route: 048
     Dates: start: 20160714
  3. ONE TWO THREE PASTE [Concomitant]
     Indication: ABSCESS
     Dosage: 1 APPLICATION
     Route: 061
     Dates: start: 20160714
  4. NORMAL SALINE [Concomitant]
     Active Substance: SODIUM CHLORIDE
     Indication: PROPHYLAXIS
     Dosage: 40 MILLIGRAM
     Route: 041
     Dates: start: 20160714, end: 20160719
  5. DOXAZOSIN [Concomitant]
     Active Substance: DOXAZOSIN\DOXAZOSIN MESYLATE
     Indication: HYPERTENSION
     Route: 048
     Dates: start: 20160620
  6. LOSARTAN. [Concomitant]
     Active Substance: LOSARTAN
     Indication: HYPERTENSION
     Dosage: 40 MILLIGRAM
     Route: 048
     Dates: start: 20160620
  7. METRONIDAZOLE. [Concomitant]
     Active Substance: METRONIDAZOLE
     Indication: INFECTION PROPHYLAXIS
     Dosage: 300 MILLIGRAM
     Route: 048
     Dates: start: 20160714
  8. ALLOPURINOL. [Concomitant]
     Active Substance: ALLOPURINOL
     Indication: PROPHYLAXIS
     Route: 048
     Dates: start: 20160714, end: 20160719
  9. VENETOCLAX [Suspect]
     Active Substance: VENETOCLAX
     Route: 048
     Dates: start: 20160716, end: 20160716
  10. VENETOCLAX [Suspect]
     Active Substance: VENETOCLAX
     Route: 048
     Dates: start: 20160717
  11. GABAPENTIN. [Concomitant]
     Active Substance: GABAPENTIN
     Indication: PROPHYLAXIS
     Dosage: 2 IU (INTERNATIONAL UNIT)
     Route: 048
     Dates: start: 20160620
  12. VENETOCLAX [Suspect]
     Active Substance: VENETOCLAX
     Dosage: 3200 MILLIGRAM
     Route: 048
     Dates: start: 20160715, end: 20160715
  13. AMOXICILLIN-CLAVULANATE [Concomitant]
     Active Substance: AMOXICILLIN\CLAVULANIC ACID
     Indication: INFECTION PROPHYLAXIS
     Dosage: 875 - 125MG
     Route: 048
     Dates: start: 20160713
  14. TAMSULOSIN [Concomitant]
     Active Substance: TAMSULOSIN
     Indication: BENIGN PROSTATIC HYPERPLASIA
     Dosage: 8 MILLIGRAM
     Route: 048
     Dates: start: 20160713
  15. VIDAZA [Suspect]
     Active Substance: AZACITIDINE
     Indication: ACUTE MYELOID LEUKAEMIA
     Dosage: 75 MILLIGRAM/SQ. METER
     Route: 041
     Dates: start: 20160714
  16. VENETOCLAX [Suspect]
     Active Substance: VENETOCLAX
     Indication: ACUTE MYELOID LEUKAEMIA
     Route: 048
     Dates: start: 20160714, end: 20160714
  17. ACYCLOVIR. [Concomitant]
     Active Substance: ACYCLOVIR
     Indication: INFECTION PROPHYLAXIS
     Route: 048
     Dates: start: 20160713
  18. BIMATOPROST. [Concomitant]
     Active Substance: BIMATOPROST
     Indication: GLAUCOMA
     Route: 047
     Dates: start: 20160713
  19. ONDANSETRON [Concomitant]
     Active Substance: ONDANSETRON
     Indication: PROPHYLAXIS OF NAUSEA AND VOMITING
     Dosage: 750 MILLIGRAM
     Route: 048
     Dates: start: 20160714
  20. CHOLECALCIFEROL [Concomitant]
     Active Substance: CHOLECALCIFEROL
     Indication: SUPPLEMENTATION THERAPY
     Route: 048
     Dates: start: 20160714
  21. LEVAQUIN [Concomitant]
     Active Substance: LEVOFLOXACIN
     Indication: INFECTION PROPHYLAXIS
     Dosage: 8 MILLIGRAM
     Route: 048
     Dates: start: 20160714

REACTIONS (2)
  - Bronchopulmonary aspergillosis [Recovered/Resolved]
  - Febrile neutropenia [Recovered/Resolved]

NARRATIVE: CASE EVENT DATE: 20161003
